FAERS Safety Report 17086447 (Version 1)
Quarter: 2019Q4

REPORT INFORMATION
  Report Type: Spontaneous
  Country: US (occurrence: US)
  Receive Date: 20191030
  Receipt Date: 20191030
  Transmission Date: 20200122
  Serious: Yes (Hospitalization)
  Sender: FDA-Public Use
  Company Number: None

PATIENT
  Age: 16 Year
  Sex: Male
  Weight: 118.1 kg

DRUGS (5)
  1. DOXORUBICIN HYDROCHLORIDE. [Suspect]
     Active Substance: DOXORUBICIN HYDROCHLORIDE
     Dates: end: 20150106
  2. VINCRISTINE SULFATE. [Suspect]
     Active Substance: VINCRISTINE SULFATE
     Dates: end: 20150416
  3. CYCLOSPASMOL [Suspect]
     Active Substance: CYCLANDELATE
     Dates: end: 20150407
  4. IFOSFAMIDE. [Concomitant]
     Active Substance: IFOSFAMIDE
     Dates: end: 20150327
  5. ETOPOSIDE (VP-16) [Suspect]
     Active Substance: ETOPOSIDE
     Dates: end: 20150327

REACTIONS (3)
  - Device related infection [None]
  - Graft infection [None]
  - Acute myeloid leukaemia [None]

NARRATIVE: CASE EVENT DATE: 20191025
